FAERS Safety Report 16702241 (Version 1)
Quarter: 2019Q3

REPORT INFORMATION
  Report Type: Spontaneous
  Country: US (occurrence: US)
  Receive Date: 20190814
  Receipt Date: 20190814
  Transmission Date: 20191004
  Serious: No
  Sender: FDA-Public Use
  Company Number: US-PFIZER INC-2019345596

PATIENT
  Age: 64 Year
  Sex: Male
  Weight: 81.63 kg

DRUGS (2)
  1. CHANTIX [Suspect]
     Active Substance: VARENICLINE TARTRATE
     Dosage: 1 MG, 2X/DAY
  2. BABY ASPIRIN [Suspect]
     Active Substance: ASPIRIN
     Dosage: 1 DF, DAILY

REACTIONS (3)
  - Nausea [Unknown]
  - Dyspnoea [Unknown]
  - Vomiting [Unknown]
